FAERS Safety Report 4610161-7 (Version None)
Quarter: 2005Q1

REPORT INFORMATION
  Report Type: 
  Country: None (occurrence: None)
  Receive Date: 20050314
  Receipt Date: 20050228
  Transmission Date: 20050727
  Serious: Yes (Life-Threatening, Other)
  Sender: FDA-Public Use
  Company Number: HQWYE639614JAN05

PATIENT
  Age: 28 Year
  Sex: Female
  Weight: 63.56 kg

DRUGS (2)
  1. EFFEXOR [Suspect]
     Indication: ANXIETY
     Dosage: 250 MG 1X PER 1 DAY, ORAL
     Route: 048
     Dates: start: 20041101
  2. EFFEXOR [Suspect]
     Indication: DEPRESSION
     Dosage: 250 MG 1X PER 1 DAY, ORAL
     Route: 048
     Dates: start: 20041101

REACTIONS (6)
  - ABNORMAL BEHAVIOUR [None]
  - AGITATION [None]
  - PARANOIA [None]
  - PSYCHOMOTOR HYPERACTIVITY [None]
  - SUICIDE ATTEMPT [None]
  - THINKING ABNORMAL [None]
